FAERS Safety Report 10652688 (Version 1)
Quarter: 2014Q4

REPORT INFORMATION
  Report Type: Spontaneous
  Country: AT (occurrence: AT)
  Receive Date: 20141215
  Receipt Date: 20141215
  Transmission Date: 20150529
  Serious: Yes (Other)
  Sender: FDA-Public Use
  Company Number: AT-BAYER-2014-182829

PATIENT
  Age: 50 Year
  Sex: Female

DRUGS (1)
  1. PRIMOVIST [Suspect]
     Active Substance: GADOXETATE DISODIUM

REACTIONS (1)
  - Nephrotic syndrome [Recovered/Resolved]
